FAERS Safety Report 10021375 (Version 1)
Quarter: 2014Q1

REPORT INFORMATION
  Report Type: Spontaneous
  Country: IT (occurrence: IT)
  Receive Date: 20140319
  Receipt Date: 20140319
  Transmission Date: 20141002
  Serious: Yes (Other)
  Sender: FDA-Public Use
  Company Number: IT-MYLANLABS-2014S1005334

PATIENT
  Age: 91 Year
  Sex: Female

DRUGS (4)
  1. MIRTAZAPINE [Suspect]
     Indication: DEPRESSION
     Dosage: .25 DF DAILY
     Route: 048
     Dates: start: 20140201, end: 20140203
  2. CARDIOASPIRIN [Concomitant]
     Indication: PRODUCT USED FOR UNKNOWN INDICATION
     Route: 048
  3. BISOPROLOL FUMARATE [Concomitant]
     Indication: PRODUCT USED FOR UNKNOWN INDICATION
     Route: 048
  4. METFORMIN [Concomitant]
     Indication: PRODUCT USED FOR UNKNOWN INDICATION
     Route: 048

REACTIONS (6)
  - Agitation [Recovering/Resolving]
  - Confusional state [Recovering/Resolving]
  - Pressure of speech [Recovering/Resolving]
  - Tremor [Recovering/Resolving]
  - Protrusion tongue [Recovering/Resolving]
  - Sedation [Recovering/Resolving]
